FAERS Safety Report 21411297 (Version 1)
Quarter: 2022Q4

REPORT INFORMATION
  Report Type: Spontaneous
  Country: CN (occurrence: CN)
  Receive Date: 20221005
  Receipt Date: 20221005
  Transmission Date: 20230113
  Serious: Yes (Hospitalization, Other)
  Sender: FDA-Public Use
  Company Number: CN-PFIZER INC-PV202200070494

PATIENT
  Age: 15 Year
  Sex: Female
  Weight: 29 kg

DRUGS (1)
  1. SOMATROPIN [Suspect]
     Active Substance: SOMATROPIN
     Indication: Hormone replacement therapy
     Dosage: 2 IU, DAILY
     Dates: start: 200902, end: 201007

REACTIONS (1)
  - Yolk sac tumour site unspecified [Unknown]
